FAERS Safety Report 9832349 (Version 2)
Quarter: 2014Q1

REPORT INFORMATION
  Report Type: Spontaneous
  Country: US (occurrence: US)
  Receive Date: 20140121
  Receipt Date: 20140324
  Transmission Date: 20141002
  Serious: Yes (Hospitalization)
  Sender: FDA-Public Use
  Company Number: US-GILEAD-2014-0092458

PATIENT
  Age: 43 Year
  Sex: Female

DRUGS (8)
  1. LETAIRIS [Suspect]
     Indication: PULMONARY ARTERIAL HYPERTENSION
     Dosage: 10 MG, QD
     Route: 048
     Dates: start: 20130205
  2. SILDENAFIL [Concomitant]
  3. ALPRAZOLAM [Concomitant]
  4. SPIRONOLACTONE [Concomitant]
  5. FUROSEMIDE [Concomitant]
  6. LEVOTHYROXINE [Concomitant]
  7. ROPINIROLE [Concomitant]
  8. ASPIRIN [Concomitant]

REACTIONS (3)
  - Infusion [Unknown]
  - Malaise [Unknown]
  - Dyspnoea [Unknown]
